FAERS Safety Report 9660908 (Version 1)
Quarter: 2013Q4

REPORT INFORMATION
  Report Type: Spontaneous
  Country: FR (occurrence: FR)
  Receive Date: 20131031
  Receipt Date: 20131031
  Transmission Date: 20140711
  Serious: Yes (Death, Hospitalization)
  Sender: FDA-Public Use
  Company Number: FR-B.I. PHARMACEUTICALS,INC./RIDGEFIELD-2013-FF-02615FF

PATIENT
  Sex: Male

DRUGS (6)
  1. MICARDIS PLUS [Suspect]
     Dosage: 80MG/12.5MGX1 DAILY
     Route: 048
  2. ISOPTINE [Suspect]
     Dosage: 240 MG
     Route: 048
  3. COTRIMOXAZOLE [Suspect]
     Indication: PROSTATITIS
     Route: 048
     Dates: start: 20130607
  4. ALLOPURINOL [Concomitant]
     Dosage: 200 MG
     Route: 048
  5. KARDEGIC [Concomitant]
     Dosage: 75 MG
     Route: 048
  6. ATORVASTATIN [Concomitant]
     Dosage: 80 MG
     Route: 048

REACTIONS (3)
  - Cardiac arrest [Fatal]
  - Hyperkalaemia [Fatal]
  - Renal failure acute [Fatal]
